FAERS Safety Report 21421079 (Version 6)
Quarter: 2023Q2

REPORT INFORMATION
  Report Type: Report from Study
  Country: US (occurrence: US)
  Receive Date: 20221007
  Receipt Date: 20230403
  Transmission Date: 20230722
  Serious: Yes (Hospitalization)
  Sender: FDA-Public Use
  Company Number: US-ABBVIE-4143397

PATIENT
  Age: 57 Year
  Sex: Female
  Weight: 102 kg

DRUGS (2)
  1. HUMIRA [Suspect]
     Active Substance: ADALIMUMAB
     Indication: Colitis ulcerative
     Dosage: CITRATE FREE, FORM STRENGTH: 40 MILLIGRAM
     Route: 058
     Dates: start: 20220815
  2. HUMIRA [Suspect]
     Active Substance: ADALIMUMAB
     Dosage: CITRATE FREE, FORM STRENGTH: 40 MILLIGRAM
     Route: 058

REACTIONS (4)
  - Colitis [Unknown]
  - Pelvic pain [Not Recovered/Not Resolved]
  - Spondylitis [Not Recovered/Not Resolved]
  - Hidradenitis [Unknown]

NARRATIVE: CASE EVENT DATE: 20220801
